FAERS Safety Report 18121974 (Version 3)
Quarter: 2021Q3

REPORT INFORMATION
  Report Type: Spontaneous
  Country: CO (occurrence: CO)
  Receive Date: 20200807
  Receipt Date: 20210822
  Transmission Date: 20211014
  Serious: Yes (Other)
  Sender: FDA-Public Use
  Company Number: CO-AMGEN-COLSP2019071546

PATIENT
  Age: 67 Year
  Sex: Female

DRUGS (2)
  1. ENBREL [Suspect]
     Active Substance: ETANERCEPT
     Indication: RHEUMATOID ARTHRITIS
     Dosage: 50 MILLIGRAM, QWK
     Route: 058
     Dates: start: 2016, end: 2019
  2. ENBREL [Suspect]
     Active Substance: ETANERCEPT
     Dosage: 50 MILLIGRAM
     Route: 058

REACTIONS (7)
  - Sciatica [Not Recovered/Not Resolved]
  - Tooth infection [Recovered/Resolved]
  - Gait disturbance [Not Recovered/Not Resolved]
  - Foot deformity [Unknown]
  - Pain in extremity [Not Recovered/Not Resolved]
  - Disease progression [Unknown]
  - Pulpitis dental [Recovered/Resolved]

NARRATIVE: CASE EVENT DATE: 2018
